FAERS Safety Report 23571250 (Version 9)
Quarter: 2025Q3

REPORT INFORMATION
  Report Type: Report from Study
  Country: EU (occurrence: EU)
  Receive Date: 20240227
  Receipt Date: 20250707
  Transmission Date: 20251021
  Serious: Yes (Hospitalization, Disabling, Other)
  Sender: TAKEDA
  Company Number: EU-TAKEDA-2024TUS018208

PATIENT
  Age: 62 Year
  Sex: Male

DRUGS (29)
  1. TEDUGLUTIDE [Suspect]
     Active Substance: TEDUGLUTIDE
     Indication: Short-bowel syndrome
     Dosage: 2.7 MILLIGRAM, QD
     Dates: start: 20230418, end: 202311
  2. TEDUGLUTIDE [Suspect]
     Active Substance: TEDUGLUTIDE
     Dosage: 1.25 MILLIGRAM, QD
     Dates: start: 20240315
  3. TEDUGLUTIDE [Suspect]
     Active Substance: TEDUGLUTIDE
  4. TEDUGLUTIDE [Suspect]
     Active Substance: TEDUGLUTIDE
  5. LEVOTHYROXINE SODIUM [Concomitant]
     Active Substance: LEVOTHYROXINE SODIUM
     Indication: Hypothyroidism
     Dosage: 125 MICROGRAM, QD
     Dates: end: 202401
  6. METAMIZOLE [Concomitant]
     Active Substance: METAMIZOLE
     Indication: Pain
  7. Tamsulosin retard zentiva [Concomitant]
     Indication: Prophylaxis
     Dosage: 0.4 MILLIGRAM, QD
  8. Kabivital [Concomitant]
     Indication: Vitamin D deficiency
     Dosage: 2000 INTERNATIONAL UNIT, BID
     Dates: end: 20231114
  9. ENOXAPARIN SODIUM [Concomitant]
     Active Substance: ENOXAPARIN SODIUM
     Indication: Thrombosis prophylaxis
     Dosage: 20 MILLIGRAM, BID
     Dates: start: 20231109, end: 20240219
  10. TORSEMIDE [Concomitant]
     Active Substance: TORSEMIDE
     Indication: Cardiac failure
     Dosage: 5 MILLIGRAM, QD
  11. Kalinor [Concomitant]
     Indication: Hypokalaemia
     Dosage: 40 MILLIMOLE, 1/WEEK
  12. ALLOPURINOL [Concomitant]
     Active Substance: ALLOPURINOL
     Indication: Hyperuricaemia
     Dosage: 100 MILLIGRAM, QD
  13. FERROUS GLUCONATE [Concomitant]
     Active Substance: FERROUS GLUCONATE
     Indication: Iron deficiency
     Dosage: 99 MILLIGRAM, QD
     Dates: start: 20250602
  14. ERYTHROPOIETIN [Concomitant]
     Active Substance: ERYTHROPOIETIN
     Indication: Anaemia
     Dates: start: 20231109, end: 20240219
  15. FENTANYL [Concomitant]
     Active Substance: FENTANYL
     Indication: Procedural pain
  16. BISOPROLOL [Concomitant]
     Active Substance: BISOPROLOL
     Indication: Atrial flutter
     Dosage: 5 MILLIGRAM, BID
     Dates: start: 202311
  17. URSODIOL [Concomitant]
     Active Substance: URSODIOL
     Indication: Bile acids
     Dosage: 250 MILLIGRAM, TID
     Dates: end: 20240815
  18. URSODIOL [Concomitant]
     Active Substance: URSODIOL
     Dosage: 250 MILLIGRAM, QD
  19. Vigantol [Concomitant]
     Indication: Vitamin D deficiency
     Dosage: 10000 INTERNATIONAL UNIT, QD
     Dates: end: 20250602
  20. Vigantol [Concomitant]
     Dosage: 2000 INTERNATIONAL UNIT, BID
     Dates: start: 20250602
  21. LOPERAMIDE [Concomitant]
     Active Substance: LOPERAMIDE
     Indication: Diarrhoea
     Dosage: 8 MILLIGRAM, TID
     Dates: start: 20250602
  22. CLOPIDOGREL [Concomitant]
     Active Substance: CLOPIDOGREL BISULFATE
     Indication: Prophylaxis
     Dosage: 75 MILLIGRAM, QD
     Dates: start: 20200303
  23. CHOLESTYRAMINE [Concomitant]
     Active Substance: CHOLESTYRAMINE
     Indication: Prophylaxis
     Dosage: 4 GRAM, BID
     Dates: start: 20220908
  24. PANTOPRAZOLE SODIUM [Concomitant]
     Active Substance: PANTOPRAZOLE SODIUM
     Indication: Prophylaxis
     Dosage: 40 MILLIGRAM, BID
  25. CANDESARTAN [Concomitant]
     Active Substance: CANDESARTAN
     Indication: Hypertension
     Dosage: 16 MILLIGRAM, BID
  26. EFEROX [Concomitant]
     Active Substance: LEVOTHYROXINE SODIUM
     Indication: Hypothyroidism
     Dosage: 200 MICROGRAM, QD
  27. FELODIPINE [Concomitant]
     Active Substance: FELODIPINE
     Indication: Hypertension
     Dosage: 5 MILLIGRAM, BID
  28. MOXONIDINE [Concomitant]
     Active Substance: MOXONIDINE
     Indication: Hypertension
  29. METAMIZOL [Concomitant]
     Active Substance: METAMIZOLE SODIUM
     Indication: Pain

REACTIONS (9)
  - Stoma complication [Recovered/Resolved]
  - Abdominal wall abscess [Recovered/Resolved]
  - Infection [Recovered/Resolved]
  - Pelvic abscess [Recovered/Resolved]
  - Anal fistula [Recovered/Resolved]
  - Hyperkalaemia [Recovered/Resolved]
  - Stoma site oedema [Not Recovered/Not Resolved]
  - Fistula [Not Recovered/Not Resolved]
  - Cholelithiasis [Not Recovered/Not Resolved]

NARRATIVE: CASE EVENT DATE: 20231109
